FAERS Safety Report 11556825 (Version 1)
Quarter: 2015Q3

REPORT INFORMATION
  Report Type: Spontaneous
  Country: US (occurrence: US)
  Receive Date: 20150925
  Receipt Date: 20150925
  Transmission Date: 20151125
  Serious: No
  Sender: FDA-Public Use
  Company Number: US-ASTRAZENECA-2015SE92194

PATIENT
  Age: 55 Year
  Sex: Female

DRUGS (1)
  1. NEXIUM 24HR [Suspect]
     Active Substance: ESOMEPRAZOLE MAGNESIUM
     Dosage: UNK
     Route: 048

REACTIONS (5)
  - Dyspepsia [Unknown]
  - Abdominal pain [Unknown]
  - Vomiting [Unknown]
  - Drug ineffective [Unknown]
  - Gastrooesophageal reflux disease [Unknown]
